FAERS Safety Report 18855644 (Version 1)
Quarter: 2021Q1

REPORT INFORMATION
  Report Type: Spontaneous
  Country: AU (occurrence: AU)
  Receive Date: 20210205
  Receipt Date: 20210205
  Transmission Date: 20210420
  Serious: Yes (Other)
  Sender: FDA-Public Use
  Company Number: AU-ASCEND THERAPEUTICS US, LLC-2106423

PATIENT
  Age: 20 Year
  Sex: Male

DRUGS (7)
  1. CYPROTERONE ACETATE (CYPROTERONE ACETATE), UNK, UNK?CONSISTED OF TOPIC [Suspect]
     Active Substance: CYPROTERONE ACETATE
     Route: 061
  2. CYPROTERONE ACETATE (CYPROTERONE ACETATE), UNK, UNK [Suspect]
     Active Substance: CYPROTERONE ACETATE
     Route: 065
  3. ESTRADIOL. [Suspect]
     Active Substance: ESTRADIOL
     Route: 061
  4. PROGESTERONE. [Suspect]
     Active Substance: PROGESTERONE
     Route: 065
  5. ESTROGEL [Suspect]
     Active Substance: ESTRADIOL
     Route: 059
  6. ESTROGEL [Suspect]
     Active Substance: ESTRADIOL
     Indication: HORMONE REPLACEMENT THERAPY
     Route: 061
  7. ESTROGEL [Suspect]
     Active Substance: ESTRADIOL

REACTIONS (2)
  - Galactorrhoea [Unknown]
  - Hyperprolactinaemia [Unknown]
